FAERS Safety Report 26034803 (Version 1)
Quarter: 2025Q4

REPORT INFORMATION
  Report Type: Spontaneous
  Country: EU (occurrence: EU)
  Receive Date: 20251112
  Receipt Date: 20251112
  Transmission Date: 20260117
  Serious: Yes (Hospitalization, Other)
  Sender: BRISTOL-MYERS SQUIBB COMPANY
  Company Number: EU-BRISTOL-MYERS SQUIBB COMPANY-2025-151391

PATIENT
  Age: 39 Year
  Sex: Male

DRUGS (4)
  1. IPILIMUMAB [Suspect]
     Active Substance: IPILIMUMAB
     Indication: Malignant melanoma
     Dates: start: 2025, end: 202503
  2. NIVOLUMAB [Suspect]
     Active Substance: NIVOLUMAB
     Indication: Malignant melanoma
     Dates: start: 2025, end: 202503
  3. NIVOLUMAB [Suspect]
     Active Substance: NIVOLUMAB
     Dosage: NIVOLUMAB MONO
     Dates: start: 202504, end: 202505
  4. HYDROCORTISONE [Concomitant]
     Active Substance: HYDROCORTISONE
     Indication: Product used for unknown indication

REACTIONS (11)
  - Adrenocortical insufficiency acute [Unknown]
  - Diabetic ketoacidosis [Unknown]
  - Delirium [Unknown]
  - Hypophysitis [Unknown]
  - Aggression [Unknown]
  - Apraxia [Unknown]
  - Infection [Unknown]
  - Personality change [Unknown]
  - Speech disorder [Unknown]
  - Stupor [Unknown]
  - Vitiligo [Recovered/Resolved]

NARRATIVE: CASE EVENT DATE: 20250101
